FAERS Safety Report 4845384-5 (Version None)
Quarter: 2005Q4

REPORT INFORMATION
  Report Type: 
  Country: None (occurrence: None)
  Receive Date: 20051205
  Receipt Date: 20051124
  Transmission Date: 20060501
  Serious: Yes (Hospitalization)
  Sender: FDA-Public Use
  Company Number: TN-BRISTOL-MYERS SQUIBB COMPANY-13193768

PATIENT
  Age: 53 Year
  Sex: Male

DRUGS (2)
  1. ELISOR TABS 20 MG [Suspect]
     Indication: ACUTE CORONARY SYNDROME
     Route: 048
     Dates: start: 20020101
  2. ASPEGIC 325 [Concomitant]

REACTIONS (3)
  - ABDOMINAL PAIN [None]
  - COLITIS ULCERATIVE [None]
  - DIARRHOEA [None]
